FAERS Safety Report 17535696 (Version 1)
Quarter: 2020Q1

REPORT INFORMATION
  Report Type: Report from Study
  Country: US (occurrence: US)
  Receive Date: 20200313
  Receipt Date: 20200313
  Transmission Date: 20200409
  Serious: Yes (Hospitalization, Other)
  Sender: FDA-Public Use
  Company Number: US-BRISTOL-MYERS SQUIBB COMPANY-BMS-2020-020097

PATIENT
  Age: 42 Year
  Sex: Female
  Weight: 100.6 kg

DRUGS (2)
  1. IPILIMUMAB [Suspect]
     Active Substance: IPILIMUMAB
     Indication: ANGIOSARCOMA
     Dosage: 100 MILLIGRAM
     Route: 042
     Dates: start: 20191003, end: 20200206
  2. NIVOLUMAB [Suspect]
     Active Substance: NIVOLUMAB
     Indication: ANGIOSARCOMA
     Dosage: 240 MILLIGRAM
     Route: 065
     Dates: start: 20191003, end: 20200206

REACTIONS (4)
  - Pneumothorax [Not Recovered/Not Resolved]
  - Pneumonitis [Not Recovered/Not Resolved]
  - Diarrhoea [Not Recovered/Not Resolved]
  - Hypokalaemia [Not Recovered/Not Resolved]

NARRATIVE: CASE EVENT DATE: 20200214
